FAERS Safety Report 4386294-X (Version None)
Quarter: 2004Q2

REPORT INFORMATION
  Report Type: 
  Country: None (occurrence: None)
  Receive Date: 20040623
  Receipt Date: 20040615
  Transmission Date: 20050107
  Serious: No
  Sender: FDA-Public Use
  Company Number: 2004CG00887

PATIENT
  Age: 66 Year
  Sex: Female
  Weight: 94 kg

DRUGS (10)
  1. IRESSA [Suspect]
     Indication: OVARIAN CANCER
     Dosage: 500 MG DAILY PO
     Route: 048
     Dates: start: 20031007, end: 20040428
  2. TAXOL [Suspect]
     Indication: OVARIAN CANCER
     Dosage: 175 MG/M2 Q3WK IV
     Route: 042
     Dates: start: 20031007, end: 20040206
  3. PARAPLATIN [Suspect]
     Indication: OVARIAN CANCER
     Dates: start: 20031007, end: 20040206
  4. TENORMIN [Concomitant]
  5. ZESTRIL [Concomitant]
  6. LASILIX [Concomitant]
  7. ALLOPURINOL TAB [Concomitant]
  8. IMODIUM [Concomitant]
  9. TIORFAN [Concomitant]
  10. ZOLPIDEM TARTRATE [Concomitant]

REACTIONS (6)
  - ANAEMIA FOLATE DEFICIENCY [None]
  - ANAEMIA VITAMIN B12 DEFICIENCY [None]
  - LEUKOPENIA [None]
  - MYELODYSPLASTIC SYNDROME [None]
  - RED BLOOD CELL COUNT DECREASED [None]
  - THROMBOCYTOPENIA [None]
